FAERS Safety Report 8544111-8 (Version None)
Quarter: 2012Q3

REPORT INFORMATION
  Report Type: 
  Country: None (occurrence: None)
  Receive Date: 20120727
  Receipt Date: 20120723
  Transmission Date: 20120928
  Serious: Yes (Other)
  Sender: FDA-Public Use
  Company Number: US-PFIZER INC-2011251074

PATIENT
  Sex: Male
  Weight: 90.703 kg

DRUGS (22)
  1. SINGULAIR [Concomitant]
     Indication: CARDIAC DISORDER
     Dosage: 10MG DAILY AT BED TIME
  2. PULMICORT [Concomitant]
     Indication: DYSPNOEA
     Dosage: 0.5MG DAILY
  3. PERFOROMIST [Concomitant]
     Indication: LUNG DISORDER
  4. POTASSIUM CHLORIDE [Concomitant]
     Indication: CARDIAC DISORDER
     Dosage: 10MG DAILY
  5. MULTI-VITAMINS [Concomitant]
     Dosage: UNK
  6. DILANTIN [Suspect]
     Indication: CONVULSION
     Dosage: 100 MG, 3X/DAY (300 MG DAILY)
     Route: 048
     Dates: start: 19860101, end: 20111001
  7. LASIX [Concomitant]
     Indication: DIURETIC THERAPY
  8. VALIUM [Concomitant]
     Indication: NEURALGIA
     Dosage: 5 MG, 1X/DAY
  9. NITROGLYCERIN [Concomitant]
     Indication: CARDIAC DISORDER
     Dosage: 0.1 MG, 2X/DAY
  10. ASPIRIN [Concomitant]
     Dosage: 325MG DAILY
  11. LASIX [Concomitant]
     Indication: CARDIAC DISORDER
     Dosage: 40MG DAILY
  12. MONOPRIL [Concomitant]
     Indication: CARDIAC DISORDER
     Dosage: 10MG DAILY
  13. ALBUTEROL [Concomitant]
     Indication: DYSPNOEA
     Dosage: 2.5 MG, AS NEEDED
  14. NITROGLYCERIN [Concomitant]
     Indication: CARDIAC DISORDER
     Dosage: UNKNOWN DOSE AS NEEDED
  15. DILANTIN [Suspect]
     Indication: GUN SHOT WOUND
     Dosage: 100 MG, UNK
     Route: 048
  16. XANAX [Concomitant]
     Indication: ANXIETY
     Dosage: 0.5 MG, 3X/DAY
  17. DILANTIN [Suspect]
     Dosage: 50 MG, UNK
     Route: 048
  18. SIMVASTATIN [Concomitant]
     Indication: CARDIAC DISORDER
     Dosage: 10MG DAILY AT BED TIME
  19. PERFOROMIST [Concomitant]
     Indication: DYSPNOEA
     Dosage: 20 UG, 2X/DAY
  20. IRON [Concomitant]
     Dosage: UNK
  21. OXYGEN [Concomitant]
     Indication: CARDIAC DISORDER
     Dosage: 6 LITERS 24HRS
  22. CALCIUM [Concomitant]
     Indication: OSTEOPOROSIS
     Dosage: 600 MG, 2X/DAY

REACTIONS (8)
  - DIZZINESS [None]
  - BALANCE DISORDER [None]
  - GAIT DISTURBANCE [None]
  - LUNG DISORDER [None]
  - DRUG INEFFECTIVE [None]
  - CARDIAC DISORDER [None]
  - ANTICONVULSANT DRUG LEVEL DECREASED [None]
  - ANTICONVULSANT DRUG LEVEL INCREASED [None]
